FAERS Safety Report 16250802 (Version 1)
Quarter: 2019Q2

REPORT INFORMATION
  Report Type: Spontaneous
  Country: US (occurrence: US)
  Receive Date: 20190325
  Receipt Date: 20190325
  Transmission Date: 20190711
  Serious: Yes (Hospitalization)
  Sender: FDA-Public Use
  Company Number: None

PATIENT
  Sex: Female

DRUGS (1)
  1. HUMIRA [Suspect]
     Active Substance: ADALIMUMAB
     Indication: POLYARTHRITIS
     Route: 058
     Dates: start: 20190225

REACTIONS (6)
  - Incontinence [None]
  - Fall [None]
  - Headache [None]
  - Anal incontinence [None]
  - Cellulitis [None]
  - Confusional state [None]
